FAERS Safety Report 7288046-X (Version None)
Quarter: 2011Q1

REPORT INFORMATION
  Report Type: 
  Country: None (occurrence: None)
  Receive Date: 20110211
  Receipt Date: 20110203
  Transmission Date: 20110831
  Serious: Yes (Other)
  Sender: FDA-Public Use
  Company Number: GB-BRACCO-000112

PATIENT
  Sex: Male

DRUGS (2)
  1. E-Z-CAT [Suspect]
     Indication: COMPUTERISED TOMOGRAM
     Dosage: CONCENTRATION: 2 %. AFTER MEALS.
     Route: 048
     Dates: start: 20080810, end: 20080810
  2. E-Z-CAT [Suspect]
     Indication: CHANGE OF BOWEL HABIT
     Dosage: CONCENTRATION: 2 %. AFTER MEALS.
     Route: 048
     Dates: start: 20080810, end: 20080810

REACTIONS (4)
  - DECREASED APPETITE [None]
  - CHILLS [None]
  - HYPERSENSITIVITY [None]
  - HYPERHIDROSIS [None]
